FAERS Safety Report 9630549 (Version 1)
Quarter: 2013Q4

REPORT INFORMATION
  Report Type: Spontaneous
  Country: IT (occurrence: IT)
  Receive Date: 20131018
  Receipt Date: 20131018
  Transmission Date: 20140711
  Serious: Yes (Hospitalization)
  Sender: FDA-Public Use
  Company Number: PHHY2013IT116995

PATIENT
  Age: 70 Year
  Sex: Male

DRUGS (6)
  1. ZOMETA [Suspect]
     Indication: PLASMA CELL MYELOMA
     Dosage: 4 MG, MONTHLY
     Route: 042
     Dates: start: 20091201, end: 20111201
  2. THALIDOMIDE [Suspect]
     Indication: PLASMA CELL MYELOMA
     Dosage: 100 MG, DAILY
     Route: 048
     Dates: start: 20090101, end: 20111201
  3. MELPHALAN [Concomitant]
     Dosage: UNK UKN, UNK
  4. DELTACORTENE [Concomitant]
     Dosage: 25 MG
     Route: 048
  5. SUGUAN [Concomitant]
     Dosage: UNK UKN, UNK
  6. HUMALOG [Concomitant]
     Dosage: UNK UKN, UNK

REACTIONS (2)
  - Osteonecrosis of jaw [Not Recovered/Not Resolved]
  - Exposed bone in jaw [Not Recovered/Not Resolved]
